FAERS Safety Report 4427939-5 (Version None)
Quarter: 2004Q3

REPORT INFORMATION
  Report Type: 
  Country: None (occurrence: None)
  Receive Date: 20040726
  Receipt Date: 20040409
  Transmission Date: 20050211
  Serious: No
  Sender: FDA-Public Use
  Company Number: USA040362595

PATIENT
  Age: 53 Day
  Sex: Female

DRUGS (3)
  1. FORTEO [Suspect]
     Indication: OSTEOPOROSIS
     Dosage: 20 UG DAY
     Dates: start: 20040317
  2. LIPITOR [Concomitant]
  3. EYE DROPS (TETRYZOLINE HYDROCHLORIDE) [Concomitant]

REACTIONS (5)
  - FEELING ABNORMAL [None]
  - INJECTION SITE HAEMORRHAGE [None]
  - MUSCLE TIGHTNESS [None]
  - PUNCTURE SITE REACTION [None]
  - TENDERNESS [None]
